FAERS Safety Report 9539015 (Version 2)
Quarter: 2013Q3

REPORT INFORMATION
  Report Type: Report from Study
  Country: US (occurrence: US)
  Receive Date: 20130920
  Receipt Date: 20130920
  Transmission Date: 20140515
  Serious: Yes (Hospitalization)
  Sender: FDA-Public Use
  Company Number: PHEH2013US015510

PATIENT
  Age: 85 Year
  Sex: Female

DRUGS (7)
  1. TASIGNA [Suspect]
     Indication: CHRONIC MYELOID LEUKAEMIA
     Dosage: 300 MG, BID
     Route: 048
     Dates: start: 20130625
  2. ALLOPURINOL [Concomitant]
     Indication: HYPERURICAEMIA
     Dosage: 100 MG, DAILY
     Dates: start: 20110708
  3. DIGOXIN [Concomitant]
     Indication: ATRIAL FIBRILLATION
     Dosage: 0.125 MG, DAILY
     Dates: start: 20080502
  4. METOPROLOL [Concomitant]
     Indication: ATRIAL FIBRILLATION
     Dosage: 50 MG, DAILY
     Dates: start: 20120731
  5. VERAPAMIL [Concomitant]
     Indication: HYPERTENSION
     Dosage: 120 MG, DAILY
     Dates: start: 20130815
  6. ISOSORBIDE [Concomitant]
     Indication: CAROTID ARTERY STENOSIS
     Dosage: 30 MG, DAILY
     Dates: start: 20130701
  7. SPIRONOLACTONE [Concomitant]
     Indication: OEDEMA
     Dosage: 25 MG, DAILY
     Dates: start: 20111003

REACTIONS (5)
  - Atrial fibrillation [Unknown]
  - Pancytopenia [Recovered/Resolved]
  - Hypersensitivity [Unknown]
  - Nausea [Recovered/Resolved]
  - Dyspnoea [Unknown]
